FAERS Safety Report 6750309-1 (Version None)
Quarter: 2010Q2

REPORT INFORMATION
  Report Type: 
  Country: None (occurrence: None)
  Receive Date: 20100601
  Receipt Date: 20100521
  Transmission Date: 20101027
  Serious: Yes (Hospitalization, Disabling)
  Sender: FDA-Public Use
  Company Number: CA-JNJFOC-20100509907

PATIENT
  Sex: Female
  Weight: 64.3 kg

DRUGS (1)
  1. REMICADE [Suspect]
     Indication: RHEUMATOID ARTHRITIS
     Route: 042

REACTIONS (4)
  - ARTERIAL STENT INSERTION [None]
  - ARTERIAL THERAPEUTIC PROCEDURE [None]
  - PNEUMONIA [None]
  - TOE AMPUTATION [None]
